FAERS Safety Report 24140389 (Version 1)
Quarter: 2024Q3

REPORT INFORMATION
  Report Type: Spontaneous
  Country: US (occurrence: US)
  Receive Date: 20240726
  Receipt Date: 20240726
  Transmission Date: 20241017
  Serious: No
  Sender: TORRENT
  Company Number: US-TORRENT-00013688

PATIENT
  Sex: Female

DRUGS (5)
  1. DAPSONE [Suspect]
     Active Substance: DAPSONE
     Indication: Acne
     Dosage: ONCE DAILY
     Route: 061
  2. ALLEGRA [Concomitant]
     Active Substance: FEXOFENADINE HYDROCHLORIDE
     Indication: Eczema
     Dosage: UNKNOWN
     Route: 065
  3. ELIDEL [Concomitant]
     Active Substance: PIMECROLIMUS
     Indication: Eczema
     Dosage: UNKNOWN
     Route: 065
  4. SOOLANTRA [Concomitant]
     Active Substance: IVERMECTIN
     Indication: Rosacea
     Dosage: UNKNOWN
     Route: 065
  5. ZYRTEC [Concomitant]
     Active Substance: CETIRIZINE HYDROCHLORIDE
     Indication: Eczema
     Dosage: UNKNOWN
     Route: 065

REACTIONS (6)
  - Scratch [Unknown]
  - Product substitution issue [Unknown]
  - Product physical issue [Unknown]
  - Product quality issue [Unknown]
  - Wrong technique in product usage process [Unknown]
  - Skin abrasion [Unknown]
